FAERS Safety Report 5517645-8 (Version None)
Quarter: 2007Q4

REPORT INFORMATION
  Report Type: 
  Country: None (occurrence: None)
  Receive Date: 20071114
  Receipt Date: 20071112
  Transmission Date: 20080405
  Serious: Yes (Death)
  Sender: FDA-Public Use
  Company Number: DE-BOEHRINGER INGELHEIM PHARMACEUTICALS, INC.-2007-DE-06678DE

PATIENT
  Sex: Male
  Weight: 85 kg

DRUGS (3)
  1. MICARDIS [Suspect]
     Indication: ESSENTIAL HYPERTENSION
     Route: 048
     Dates: start: 20070214
  2. BETA-BLOCKER [Concomitant]
     Indication: ESSENTIAL HYPERTENSION
  3. DIURETICS [Concomitant]
     Indication: ESSENTIAL HYPERTENSION

REACTIONS (1)
  - DEATH [None]
